FAERS Safety Report 8112443-3 (Version None)
Quarter: 2012Q1

REPORT INFORMATION
  Report Type: 
  Country: None (occurrence: None)
  Receive Date: 20120203
  Receipt Date: 20120131
  Transmission Date: 20120608
  Serious: Yes (Other)
  Sender: FDA-Public Use
  Company Number: GB-ROCHE-1032638

PATIENT
  Sex: Female

DRUGS (5)
  1. EPIRUBICIN [Concomitant]
  2. CYCLOPHOSPHAMIDE [Concomitant]
  3. HERCEPTIN [Suspect]
     Indication: BREAST CANCER
     Route: 042
     Dates: start: 20111129
  4. FLUOROURACIL [Concomitant]
  5. ARIMIDEX [Concomitant]
     Indication: BREAST CANCER
     Route: 048
     Dates: start: 20110908

REACTIONS (2)
  - PARAESTHESIA [None]
  - HYPOAESTHESIA [None]
